FAERS Safety Report 11106362 (Version 2)
Quarter: 2015Q2

REPORT INFORMATION
  Report Type: Spontaneous
  Country: ZA (occurrence: ZA)
  Receive Date: 20150512
  Receipt Date: 20150520
  Transmission Date: 20150821
  Serious: Yes (Other)
  Sender: FDA-Public Use
  Company Number: ZA-PFIZER INC-2015154763

PATIENT
  Age: 60 Year
  Sex: Female

DRUGS (4)
  1. URBANOL [Concomitant]
     Active Substance: CLOBAZAM
     Indication: STRESS
     Dosage: 5 MG, 2X/DAY (1 IN THE MORNING, 1 AT NIGHT)
     Route: 048
  2. EPANUTIN [Suspect]
     Active Substance: PHENYTOIN SODIUM
     Indication: EPILEPSY
     Dosage: 100 MG, 2X/DAY  (1 IN THE MORNING, 1 AT NIGHT)
     Route: 048
     Dates: start: 201301, end: 201503
  3. PHENYTOIN SODIUM. [Suspect]
     Active Substance: PHENYTOIN SODIUM
     Dosage: UNK
     Dates: start: 20150313
  4. PUR-BLOKA [Concomitant]
     Dosage: 5 MG, 2X/DAY (1 IN THE MORNING, 1 AT NIGHT)
     Route: 048

REACTIONS (3)
  - Anticonvulsant drug level decreased [Unknown]
  - Hypersomnia [Recovered/Resolved]
  - Seizure [Recovered/Resolved]

NARRATIVE: CASE EVENT DATE: 20150429
